FAERS Safety Report 25741565 (Version 1)
Quarter: 2025Q3

REPORT INFORMATION
  Report Type: Spontaneous
  Country: US (occurrence: US)
  Receive Date: 20250829
  Receipt Date: 20250829
  Transmission Date: 20251021
  Serious: No
  Sender: SANOFI AVENTIS
  Company Number: US-SA-2025SA257606

PATIENT
  Age: 66 Year
  Sex: Male
  Weight: 54.422 kg

DRUGS (8)
  1. DUPIXENT [Suspect]
     Active Substance: DUPILUMAB
     Indication: Dermatitis atopic
     Dosage: 300 MG, QOW
     Route: 058
     Dates: start: 20220308, end: 2024
  2. DUPIXENT [Suspect]
     Active Substance: DUPILUMAB
     Dosage: 300 MG, QOW
     Route: 058
  3. TERBINAFINE HYDROCHLORIDE [Concomitant]
     Active Substance: TERBINAFINE HYDROCHLORIDE
  4. TRIAD [Concomitant]
     Active Substance: ACETAMINOPHEN\BUTALBITAL\CAFFEINE
  5. LISINOPRIL [Concomitant]
     Active Substance: LISINOPRIL
  6. SOOLANTRA [Concomitant]
     Active Substance: IVERMECTIN
  7. CICLOPIROX [Concomitant]
     Active Substance: CICLOPIROX
  8. VISION PLUS [Concomitant]

REACTIONS (3)
  - Muscle spasms [Recovering/Resolving]
  - Rebound atopic dermatitis [Recovering/Resolving]
  - Genital infection fungal [Recovering/Resolving]

NARRATIVE: CASE EVENT DATE: 20240101
